FAERS Safety Report 17942658 (Version 1)
Quarter: 2020Q2

REPORT INFORMATION
  Report Type: Spontaneous
  Country: FR (occurrence: FR)
  Receive Date: 20200625
  Receipt Date: 20200625
  Transmission Date: 20200714
  Serious: Yes (Hospitalization)
  Sender: FDA-Public Use
  Company Number: FR-AUROBINDO-AUR-APL-2020-031068

PATIENT
  Age: 53 Year
  Sex: Male

DRUGS (4)
  1. FLAGYL [Suspect]
     Active Substance: METRONIDAZOLE\METRONIDAZOLE HYDROCHLORIDE
     Indication: HELICOBACTER GASTRITIS
     Dosage: 500 MILLIGRAM, TOTAL
     Route: 048
     Dates: start: 20190801, end: 20190801
  2. ESOMEPRAZOLE. [Suspect]
     Active Substance: ESOMEPRAZOLE MAGNESIUM
     Indication: HELICOBACTER GASTRITIS
     Dosage: 40 MILLIGRAM
     Route: 048
     Dates: start: 20190801, end: 20190801
  3. AMOXICILLIN MYLAN [Suspect]
     Active Substance: AMOXICILLIN
     Indication: HELICOBACTER GASTRITIS
     Dosage: 1 GRAM, TOTAL
     Route: 048
     Dates: start: 20190801, end: 20190801
  4. CLARITHROMYCINE MYLAN [Suspect]
     Active Substance: CLARITHROMYCIN
     Indication: HELICOBACTER GASTRITIS
     Dosage: 500 MILLIGRAM, TOTAL
     Route: 048
     Dates: start: 20190801, end: 20190801

REACTIONS (4)
  - Oedema [Recovered/Resolved]
  - Pruritus [Recovered/Resolved]
  - Dyspnoea [Recovered/Resolved]
  - Vomiting [Recovered/Resolved]

NARRATIVE: CASE EVENT DATE: 20190801
